FAERS Safety Report 21223514 (Version 3)
Quarter: 2022Q4

REPORT INFORMATION
  Report Type: Report from Study
  Country: DE (occurrence: DE)
  Receive Date: 20220817
  Receipt Date: 20221202
  Transmission Date: 20230112
  Serious: Yes (Hospitalization)
  Sender: FDA-Public Use
  Company Number: DE-EXELIXIS-XL18422054897

PATIENT

DRUGS (5)
  1. CABOZANTINIB [Suspect]
     Active Substance: CABOZANTINIB
     Indication: Renal cell carcinoma
     Dosage: 40 MG, QD
     Dates: start: 20220727, end: 20220803
  2. TIMOLOL MALEATE [Concomitant]
     Active Substance: TIMOLOL MALEATE
     Dosage: UNK
  3. CANDESARTAN [Concomitant]
     Active Substance: CANDESARTAN
     Dosage: UNK
  4. AMPICILLIN [Concomitant]
     Active Substance: AMPICILLIN
  5. UREA [Concomitant]
     Active Substance: UREA
     Dosage: UNK

REACTIONS (1)
  - Groin abscess [Recovered/Resolved]

NARRATIVE: CASE EVENT DATE: 20220802
